FAERS Safety Report 19979386 (Version 2)
Quarter: 2021Q4

REPORT INFORMATION
  Report Type: Report from Study
  Country: CH (occurrence: CH)
  Receive Date: 20211021
  Receipt Date: 20211117
  Transmission Date: 20220303
  Serious: Yes (Other)
  Sender: FDA-Public Use
  Company Number: CH-ABBVIE-21K-151-4126251-00

PATIENT
  Age: 66 Year
  Sex: Male

DRUGS (3)
  1. CARBIDOPA\LEVODOPA [Suspect]
     Active Substance: CARBIDOPA\LEVODOPA
     Indication: Parkinson^s disease
     Dosage: MD: 5 ML, CRD: 2.2 ML/H, CRN: 0 ML/H, ED: 1.0 ML?16H THERAPY
     Route: 050
     Dates: start: 20211006, end: 20211008
  2. CARBIDOPA\LEVODOPA [Suspect]
     Active Substance: CARBIDOPA\LEVODOPA
     Dosage: MD: 8.5 ML, CRD: 2.6 ML/H, CRN: 0 ML/H, ED: 1.5 ML?16H THERAPY
     Route: 050
     Dates: start: 20211008, end: 20211011
  3. CARBIDOPA\LEVODOPA [Suspect]
     Active Substance: CARBIDOPA\LEVODOPA
     Dosage: MD: 8.5 ML, CRD: 2.6 ML/H, CRN: 0 ML/H, ED: 2.0 ML?16H THERAPY
     Route: 050
     Dates: start: 20211011

REACTIONS (1)
  - Gastric cancer [Not Recovered/Not Resolved]

NARRATIVE: CASE EVENT DATE: 20211001
